FAERS Safety Report 11858369 (Version 5)
Quarter: 2017Q4

REPORT INFORMATION
  Report Type: Report from Study
  Country: JP (occurrence: JP)
  Receive Date: 20151222
  Receipt Date: 20171219
  Transmission Date: 20180320
  Serious: Yes (Hospitalization, Other)
  Sender: FDA-Public Use
  Company Number: JP-ALXN-A201505058AA

PATIENT
  Age: 33 Year
  Sex: Male
  Weight: 68 kg

DRUGS (16)
  1. PREDONINE [Concomitant]
     Active Substance: PREDNISOLONE
     Dosage: 2 MG, QD
     Route: 048
     Dates: start: 20150718, end: 20150812
  2. SOLIRIS [Suspect]
     Active Substance: ECULIZUMAB
     Indication: HAEMOLYTIC URAEMIC SYNDROME
     Dosage: 900 MG, QW
     Route: 042
     Dates: start: 20150116, end: 20150206
  3. SOLIRIS [Suspect]
     Active Substance: ECULIZUMAB
     Dosage: 1200 MG, Q3W
     Route: 042
     Dates: start: 20151022
  4. CEFTRIAXONE. [Suspect]
     Active Substance: CEFTRIAXONE
     Indication: INFECTION PROPHYLAXIS
     Dosage: 2 G, QD
     Route: 065
     Dates: start: 20150115, end: 20150210
  5. LEVOFLOXACIN. [Concomitant]
     Active Substance: LEVOFLOXACIN
     Dosage: 250 MG, QD
     Route: 048
     Dates: start: 20150501, end: 20150507
  6. LEVOFLOXACIN. [Concomitant]
     Active Substance: LEVOFLOXACIN
     Dosage: 250 MG, QD
     Route: 048
     Dates: start: 20150608, end: 20150612
  7. PREDONINE [Concomitant]
     Active Substance: PREDNISOLONE
     Indication: HAEMOLYTIC URAEMIC SYNDROME
     Dosage: 60 MG, QD
     Route: 048
     Dates: start: 20141229, end: 20150717
  8. CEFTRIAXONE. [Suspect]
     Active Substance: CEFTRIAXONE
     Indication: CHOLELITHIASIS
     Dosage: 2 G, QD
     Route: 042
     Dates: start: 20150401, end: 20150402
  9. LEVOFLOXACIN. [Concomitant]
     Active Substance: LEVOFLOXACIN
     Indication: INFECTION PROPHYLAXIS
     Dosage: 500 MG, QD
     Route: 048
     Dates: start: 20150429, end: 20150429
  10. LEVOFLOXACIN. [Concomitant]
     Active Substance: LEVOFLOXACIN
     Dosage: UNK
  11. SOLIRIS [Suspect]
     Active Substance: ECULIZUMAB
     Dosage: 1200 MG, Q2W
     Route: 042
     Dates: start: 20150213, end: 20151008
  12. CEFTRIAXONE. [Suspect]
     Active Substance: CEFTRIAXONE
     Indication: CHOLECYSTITIS
     Dosage: 2 G, QD
     Route: 042
     Dates: start: 20150412, end: 20150415
  13. NIFEDIPINE. [Concomitant]
     Active Substance: NIFEDIPINE
     Indication: HYPERTENSION
     Dosage: 80 MG, BID
     Route: 048
     Dates: start: 20141230
  14. SULFAMETHOXAZOLE AND TRIMETHOPRIM [Concomitant]
     Active Substance: SULFAMETHOXAZOLE\TRIMETHOPRIM
     Indication: INFECTION PROPHYLAXIS
     Dosage: 25 MG, TIW
     Route: 048
     Dates: start: 20150209, end: 20150812
  15. LEVOFLOXACIN. [Concomitant]
     Active Substance: LEVOFLOXACIN
     Dosage: 500 MG, QD
     Route: 048
     Dates: start: 20150606, end: 20150606
  16. CEFAZOLIN SODIUM. [Concomitant]
     Active Substance: CEFAZOLIN SODIUM
     Indication: PRODUCT USED FOR UNKNOWN INDICATION
     Dosage: 1.00 G, QD
     Route: 041
     Dates: start: 20150111, end: 20150115

REACTIONS (4)
  - Cholecystitis [Recovered/Resolved]
  - Cholelithiasis [Not Recovered/Not Resolved]
  - Decreased appetite [Recovered/Resolved]
  - Viral rhinitis [Recovered/Resolved]

NARRATIVE: CASE EVENT DATE: 20150401
